FAERS Safety Report 11353207 (Version 1)
Quarter: 2015Q3

REPORT INFORMATION
  Report Type: Spontaneous
  Country: US (occurrence: US)
  Receive Date: 20150807
  Receipt Date: 20150807
  Transmission Date: 20151125
  Serious: No
  Sender: FDA-Public Use
  Company Number: US-JNJFOC-20140818719

PATIENT
  Sex: Female
  Weight: 100.7 kg

DRUGS (9)
  1. VITAMIN [Concomitant]
     Active Substance: VITAMINS
     Indication: UNEVALUABLE EVENT
  2. MENS ROGAINE EXTRA STRENGTH [Suspect]
     Active Substance: MINOXIDIL
     Indication: ALOPECIA
     Route: 061
  3. MENS ROGAINE EXTRA STRENGTH [Suspect]
     Active Substance: MINOXIDIL
     Route: 061
  4. MENS ROGAINE EXTRA STRENGTH [Suspect]
     Active Substance: MINOXIDIL
     Indication: ALOPECIA
     Route: 061
  5. MULTIVITAMINS [Concomitant]
     Active Substance: VITAMINS
     Indication: EYE DISORDER
     Route: 065
  6. CALCIUM [Concomitant]
     Active Substance: CALCIUM
     Route: 065
  7. MENS ROGAINE EXTRA STRENGTH [Suspect]
     Active Substance: MINOXIDIL
     Route: 061
  8. MAGNESIUM [Concomitant]
     Active Substance: MAGNESIUM
     Indication: PRODUCT USED FOR UNKNOWN INDICATION
  9. VITAMIN [Concomitant]
     Active Substance: VITAMINS
     Indication: NAIL DISORDER

REACTIONS (5)
  - Wrong technique in product usage process [Unknown]
  - Dry skin [Unknown]
  - Wrong patient received medication [Unknown]
  - Product formulation issue [Unknown]
  - Hair texture abnormal [Not Recovered/Not Resolved]
